FAERS Safety Report 4791168-6 (Version None)
Quarter: 2005Q4

REPORT INFORMATION
  Report Type: 
  Country: None (occurrence: None)
  Receive Date: 20051005
  Receipt Date: 20050923
  Transmission Date: 20060501
  Serious: Yes (Other)
  Sender: FDA-Public Use
  Company Number: 2005-DE-03959GD

PATIENT
  Age: 74 Year
  Sex: Male

DRUGS (6)
  1. LORAZEPAM [Suspect]
     Dosage: 1 OR 2.5 MG (AS NECESSARY)
  2. CLOZAPINE [Suspect]
     Dosage: 100 MG
  3. TEMAZEPAM [Suspect]
     Dosage: 10 MG (AT NIGHT-TIME)
  4. PIMOZIDE (PIMOZIDE) [Concomitant]
  5. LITHIUM CARBONATE [Concomitant]
  6. PARACETAMOL (PARACETAMOL) (PARACETAMOL) [Concomitant]

REACTIONS (10)
  - ATRIOVENTRICULAR BLOCK FIRST DEGREE [None]
  - BODY TEMPERATURE INCREASED [None]
  - COMA [None]
  - DRUG INEFFECTIVE [None]
  - INCORRECT DOSE ADMINISTERED [None]
  - MIOSIS [None]
  - MYOCARDIAL INFARCTION [None]
  - OVERDOSE [None]
  - RED BLOOD CELL SEDIMENTATION RATE INCREASED [None]
  - SOMNOLENCE [None]
